FAERS Safety Report 7568801-9 (Version None)
Quarter: 2011Q2

REPORT INFORMATION
  Report Type: 
  Country: None (occurrence: None)
  Receive Date: 20110623
  Receipt Date: 20110615
  Transmission Date: 20111010
  Serious: Yes (Other)
  Sender: FDA-Public Use
  Company Number: JP-PFIZER INC-2011130836

PATIENT
  Age: 76 Year
  Sex: Male

DRUGS (12)
  1. CABERGOLINE [Suspect]
     Dosage: 1.25 MG, 1X/DAY
     Dates: start: 20040201, end: 20051001
  2. TRIHEXYPHENIDYL [Suspect]
     Indication: PARKINSON'S DISEASE
     Dosage: 4 MG, 1X/DAY
     Dates: start: 19980801
  3. CABERGOLINE [Suspect]
     Indication: PARKINSON'S DISEASE
     Dosage: 0.25 MG, 1X/DAY
     Dates: start: 20011001, end: 20020401
  4. CARBIDOPA + LEVODOPA [Concomitant]
     Dosage: 200 MG, 1X/DAY
     Dates: start: 19980601, end: 19980701
  5. CARBIDOPA + LEVODOPA [Concomitant]
     Dosage: UNKNOWN
  6. CARBIDOPA + LEVODOPA [Concomitant]
     Dosage: 300 MG, 1X/DAY
     Dates: start: 20040201
  7. PERGOLIDE MESILATE [Concomitant]
     Dosage: 150 UG, 1X/DAY
     Dates: start: 19980701
  8. PERGOLIDE MESILATE [Concomitant]
     Indication: PARKINSON'S DISEASE
     Dosage: 100 UG, 1X/DAY
     Dates: start: 19980601
  9. CARBIDOPA + LEVODOPA [Concomitant]
     Dosage: 300 MG, 1X/DAY
     Dates: start: 19980701
  10. CARBIDOPA + LEVODOPA [Concomitant]
     Indication: PARKINSON'S DISEASE
     Dosage: 100 MG, 1X/DAY
     Dates: start: 19970101, end: 19980601
  11. CABERGOLINE [Suspect]
     Dosage: 0.5 MG, 1X/DAY
     Dates: start: 20020401, end: 20021001
  12. CABERGOLINE [Suspect]
     Dosage: 1 MG, 1X/DAY
     Dates: start: 20021001, end: 20040201

REACTIONS (3)
  - ABNORMAL BEHAVIOUR [None]
  - HALLUCINATION [None]
  - PERSECUTORY DELUSION [None]
